FAERS Safety Report 26218620 (Version 1)
Quarter: 2025Q4

REPORT INFORMATION
  Report Type: Spontaneous
  Country: US (occurrence: US)
  Receive Date: 20251231
  Receipt Date: 20251231
  Transmission Date: 20260118
  Serious: Yes (Life-Threatening, Hospitalization)
  Sender: DR REDDYS
  Company Number: None

PATIENT
  Age: 11 Year
  Sex: Female
  Weight: 33.2 kg

DRUGS (7)
  1. METHYLPHENIDATE [Suspect]
     Active Substance: METHYLPHENIDATE
     Indication: Product used for unknown indication
     Dosage: SHE TOOK THAT MORNING??FORM OF ADMIN: ER
  2. KETAMINE [Suspect]
     Active Substance: KETAMINE
     Indication: Sedative therapy
     Dosage: 6 MG/KG
     Route: 048
  3. MIDAZOLAM [Suspect]
     Active Substance: MIDAZOLAM
     Indication: Sedative therapy
     Dosage: .5 MG/KG, MAX 15 MG
     Route: 048
  4. GUANFACINE [Suspect]
     Active Substance: GUANFACINE
     Indication: Product used for unknown indication
     Dosage: SHE TOOK THAT MORNING
  5. FERROUS SULFATE [Concomitant]
     Active Substance: FERROUS SULFATE
     Indication: Product used for unknown indication
     Dosage: SHE DID NOT TAKE
  6. CETIRIZINE [Concomitant]
     Active Substance: CETIRIZINE HYDROCHLORIDE
     Indication: Product used for unknown indication
     Dosage: SHE DID NOT TAKE
  7. MELATONIN [Concomitant]
     Active Substance: MELATONIN
     Indication: Product used for unknown indication
     Dosage: SHE DID NOT TAKE

REACTIONS (4)
  - Respiratory depression [Recovered/Resolved]
  - Drug interaction [Recovered/Resolved]
  - Upper airway obstruction [Recovered/Resolved]
  - Sedation complication [Recovered/Resolved]
